FAERS Safety Report 10133736 (Version 1)
Quarter: 2014Q2

REPORT INFORMATION
  Report Type: Spontaneous
  Country: DE (occurrence: DE)
  Receive Date: 20140428
  Receipt Date: 20140428
  Transmission Date: 20141212
  Serious: Yes (Hospitalization)
  Sender: FDA-Public Use
  Company Number: DE-ELI_LILLY_AND_COMPANY-DE201404007120

PATIENT
  Age: 82 Year
  Sex: Female
  Weight: 55 kg

DRUGS (4)
  1. EFIENT [Suspect]
     Indication: ACUTE MYOCARDIAL INFARCTION
     Dosage: 60 MG, SINGLE
     Dates: start: 20110712, end: 20110712
  2. EFIENT [Suspect]
     Dosage: 10 MG, QD
     Route: 065
     Dates: end: 20120712
  3. ASPIRIN [Concomitant]
     Dosage: UNK, SINGLE
     Route: 048
  4. ASPIRIN [Concomitant]
     Dosage: 100 MG, QD
     Route: 048

REACTIONS (3)
  - Angiopathy [Recovered/Resolved]
  - Arterial haemorrhage [Recovered/Resolved]
  - Shock haemorrhagic [Recovered/Resolved]
